FAERS Safety Report 6917127-2 (Version None)
Quarter: 2010Q3

REPORT INFORMATION
  Report Type: 
  Country: None (occurrence: None)
  Receive Date: 20100810
  Receipt Date: 20100805
  Transmission Date: 20110219
  Serious: Yes (Other)
  Sender: FDA-Public Use
  Company Number: D0068243A

PATIENT
  Sex: Male

DRUGS (3)
  1. REQUIP [Suspect]
     Indication: PARKINSONISM
     Dosage: 12MG PER DAY
     Route: 065
     Dates: start: 20090101
  2. LEVODOPA [Concomitant]
     Route: 065
  3. SELEGILIN [Concomitant]
     Route: 065

REACTIONS (6)
  - DYSKINESIA [None]
  - FEAR [None]
  - HALLUCINATION [None]
  - ILLUSION [None]
  - PSYCHOTIC DISORDER [None]
  - RESTLESSNESS [None]
